FAERS Safety Report 10428605 (Version 1)
Quarter: 2014Q3

REPORT INFORMATION
  Report Type: Spontaneous
  Country: AU (occurrence: None)
  Receive Date: 20140829
  Receipt Date: 20140829
  Transmission Date: 20150326
  Serious: Yes (Life-Threatening, Hospitalization)
  Sender: FDA-Public Use
  Company Number: IMP_07847_2014

PATIENT
  Age: 66 Year
  Sex: Female

DRUGS (6)
  1. HYDROCHLOROTHIAZIDE. [Concomitant]
     Active Substance: HYDROCHLOROTHIAZIDE
  2. ATORVASTATIN [Concomitant]
     Active Substance: ATORVASTATIN
  3. GLICLAZIDE [Concomitant]
     Active Substance: GLICLAZIDE
  4. METFORMIN [Suspect]
     Active Substance: METFORMIN HYDROCHLORIDE
     Indication: PRODUCT USED FOR UNKNOWN INDICATION
  5. RAMIPRIL. [Concomitant]
     Active Substance: RAMIPRIL
  6. ASPIRIN. [Concomitant]
     Active Substance: ASPIRIN

REACTIONS (13)
  - Lactic acidosis [None]
  - Diarrhoea [None]
  - Renal failure acute [None]
  - Shock [None]
  - Continuous haemodiafiltration [None]
  - Metabolic acidosis [None]
  - Blood glucose decreased [None]
  - Dehydration [None]
  - Cardiac arrest [None]
  - Pulseless electrical activity [None]
  - Intestinal ischaemia [None]
  - Malaise [None]
  - Hypophagia [None]
